FAERS Safety Report 4263784-1 (Version None)
Quarter: 2004Q1

REPORT INFORMATION
  Report Type: 
  Country: None (occurrence: None)
  Receive Date: 20040102
  Receipt Date: 20031222
  Transmission Date: 20041129
  Serious: Yes (Life-Threatening, Other)
  Sender: FDA-Public Use
  Company Number: ZANA001112

PATIENT
  Age: 32 Year
  Sex: Male

DRUGS (5)
  1. ZANAFLEX [Suspect]
     Indication: DRUG USE FOR UNKNOWN INDICATION
     Dosage: 36 MG ORAL
     Route: 048
  2. BACLOFEN [Suspect]
     Indication: DRUG USE FOR UNKNOWN INDICATION
  3. NEURONTIN [Concomitant]
  4. DITROPAN [Concomitant]
  5. PREDENISONE (PREDNISONE) [Concomitant]

REACTIONS (3)
  - GLUCOSE-6-PHOSPHATE DEHYDROGENASE DEFICIENCY [None]
  - HAEMOLYSIS [None]
  - REFUSAL OF TREATMENT BY PATIENT [None]
